FAERS Safety Report 17989607 (Version 1)
Quarter: 2020Q3

REPORT INFORMATION
  Report Type: Spontaneous
  Country: FR (occurrence: FR)
  Receive Date: 20200707
  Receipt Date: 20200707
  Transmission Date: 20201103
  Serious: Yes (Hospitalization)
  Sender: FDA-Public Use
  Company Number: FR-BAUSCH-BL-2020-018552

PATIENT
  Age: 86 Year
  Sex: Female
  Weight: 41 kg

DRUGS (3)
  1. PREDNISOLONE. [Suspect]
     Active Substance: PREDNISOLONE
     Indication: BACK PAIN
     Route: 048
     Dates: start: 20200513, end: 20200523
  2. KETOPROFENE [Suspect]
     Active Substance: KETOPROFEN
     Indication: BACK PAIN
     Route: 048
     Dates: start: 20200331, end: 20200406
  3. IBUPROFENE [Suspect]
     Active Substance: IBUPROFEN
     Indication: BACK PAIN
     Route: 048
     Dates: start: 20200427, end: 20200504

REACTIONS (1)
  - Pneumoperitoneum [Recovering/Resolving]

NARRATIVE: CASE EVENT DATE: 20200530
